FAERS Safety Report 25883657 (Version 1)
Quarter: 2025Q4

REPORT INFORMATION
  Report Type: Spontaneous
  Country: CA (occurrence: None)
  Receive Date: 20251006
  Receipt Date: 20251006
  Transmission Date: 20260118
  Serious: Yes (Hospitalization)
  Sender: ORION
  Company Number: CA-PFIZER INC-202500193950

PATIENT
  Age: 57 Year
  Sex: Female

DRUGS (4)
  1. METHOTREXATE [Suspect]
     Active Substance: METHOTREXATE
     Indication: Product used for unknown indication
  2. METHOTREXATE [Suspect]
     Active Substance: METHOTREXATE
     Dosage: DOSE INCREASED
  3. IXIFI [Suspect]
     Active Substance: INFLIXIMAB-QBTX
     Indication: Sarcoidosis
     Dates: start: 20250604
  4. IXIFI [Suspect]
     Active Substance: INFLIXIMAB-QBTX
     Dates: start: 20250926

REACTIONS (1)
  - Pain [Unknown]
